FAERS Safety Report 12973346 (Version 1)
Quarter: 2016Q4

REPORT INFORMATION
  Report Type: Spontaneous
  Country: US (occurrence: US)
  Receive Date: 20161124
  Receipt Date: 20161124
  Transmission Date: 20170207
  Serious: No
  Sender: FDA-Public Use
  Company Number: US-009507513-1611USA004788

PATIENT
  Sex: Female

DRUGS (7)
  1. METFORMIN EXTENDED RELASE [Concomitant]
     Dosage: 500 MG, UNK, UNK
     Route: 048
  2. JANUVIA [Suspect]
     Active Substance: SITAGLIPTIN PHOSPHATE
     Indication: DIABETES MELLITUS
     Dosage: UNK
     Route: 048
     Dates: start: 2013, end: 20160922
  3. INSULIN [Concomitant]
     Active Substance: INSULIN NOS
     Dosage: 50 IU, IN THE EVENING
  4. GLIPIZIDE. [Concomitant]
     Active Substance: GLIPIZIDE
     Dosage: 10 MG, UNK
  5. RANITIDINE. [Concomitant]
     Active Substance: RANITIDINE
     Dosage: UNK
  6. METFORMIN [Concomitant]
     Active Substance: METFORMIN HYDROCHLORIDE
     Dosage: 1000MG, UNK
     Route: 048
  7. BYDUREON [Concomitant]
     Active Substance: EXENATIDE
     Dosage: 2 MG, QW, EXTENDED RELEASE
     Route: 051

REACTIONS (1)
  - Gastric disorder [Not Recovered/Not Resolved]

NARRATIVE: CASE EVENT DATE: 2016
